FAERS Safety Report 15343637 (Version 2)
Quarter: 2018Q3

REPORT INFORMATION
  Report Type: Spontaneous
  Country: US (occurrence: US)
  Receive Date: 20180903
  Receipt Date: 20180905
  Transmission Date: 20181010
  Serious: No
  Sender: FDA-Public Use
  Company Number: US-PFIZER INC-2018349628

PATIENT
  Age: 72 Year
  Sex: Male
  Weight: 84.81 kg

DRUGS (6)
  1. LATANOPROST. [Suspect]
     Active Substance: LATANOPROST
     Dosage: 2 GTT, 1X/DAY[AT NIGHT]
     Route: 047
     Dates: start: 20180828
  2. LATANOPROST. [Suspect]
     Active Substance: LATANOPROST
     Dosage: UNK[125 MICROGRAMS AT 2.5 ML]
  3. LATANOPROST. [Suspect]
     Active Substance: LATANOPROST
     Dosage: UNK
  4. LOVASTATIN. [Concomitant]
     Active Substance: LOVASTATIN
     Indication: BLOOD CHOLESTEROL INCREASED
     Dosage: 40 MG, 1X/DAY
     Route: 048
  5. LATANOPROST. [Suspect]
     Active Substance: LATANOPROST
     Dosage: UNK  (ONE DROP IN EACH EYE AT NIGHT)
     Route: 047
     Dates: start: 20180828
  6. LATANOPROST. [Suspect]
     Active Substance: LATANOPROST
     Indication: GLAUCOMA
     Dosage: UNK
     Route: 047
     Dates: start: 20180829

REACTIONS (7)
  - Asthenopia [Not Recovered/Not Resolved]
  - Eye irritation [Unknown]
  - Eye disorder [Unknown]
  - Suspected counterfeit product [Unknown]
  - Superficial injury of eye [Not Recovered/Not Resolved]
  - Lacrimation increased [Unknown]
  - Eye pain [Not Recovered/Not Resolved]

NARRATIVE: CASE EVENT DATE: 20180828
